FAERS Safety Report 6158567-1 (Version None)
Quarter: 2009Q2

REPORT INFORMATION
  Report Type: 
  Country: None (occurrence: None)
  Receive Date: 20090417
  Receipt Date: 20090414
  Transmission Date: 20091009
  Serious: Yes (Hospitalization)
  Sender: FDA-Public Use
  Company Number: JP-BAYER-200911080BYL

PATIENT
  Age: 78 Year
  Sex: Male

DRUGS (3)
  1. ASPIRIN [Suspect]
     Indication: ANTICOAGULANT THERAPY
     Dosage: UNIT DOSE: 100 MG
     Route: 048
     Dates: start: 20040501, end: 20060201
  2. WARFARIN SODIUM [Suspect]
     Indication: ANTICOAGULANT THERAPY
     Route: 048
     Dates: start: 20040301, end: 20051201
  3. TICLOPIDINE HCL [Concomitant]
     Indication: ANTICOAGULANT THERAPY
     Route: 048
     Dates: start: 20040301, end: 20040501

REACTIONS (2)
  - CARDIAC FAILURE [None]
  - PERICARDIAL HAEMORRHAGE [None]
